FAERS Safety Report 16027753 (Version 1)
Quarter: 2019Q1

REPORT INFORMATION
  Report Type: Spontaneous
  Country: US (occurrence: US)
  Receive Date: 20190304
  Receipt Date: 20190304
  Transmission Date: 20190418
  Serious: No
  Sender: FDA-Public Use
  Company Number: US-IMPAX LABORATORIES, LLC-2018-IPXL-00674

PATIENT
  Age: 80 Year
  Sex: Female
  Weight: 37 kg

DRUGS (2)
  1. RYTARY [Suspect]
     Active Substance: CARBIDOPA\LEVODOPA
     Indication: PARKINSON^S DISEASE
     Dosage: 36.25MG/145MG TAKES 3 CAPS PER DAY
     Route: 048
  2. TILADE [Concomitant]
     Active Substance: NEDOCROMIL SODIUM
     Indication: CHRONIC OBSTRUCTIVE PULMONARY DISEASE
     Dosage: INHALER
     Route: 065

REACTIONS (2)
  - Stress [Unknown]
  - Cough [Unknown]
